FAERS Safety Report 24152235 (Version 1)
Quarter: 2024Q3

REPORT INFORMATION
  Report Type: Spontaneous
  Country: US (occurrence: US)
  Receive Date: 20240730
  Receipt Date: 20240730
  Transmission Date: 20241016
  Serious: No
  Sender: PFIZER
  Company Number: US-PFIZER INC-202400223019

PATIENT
  Age: 43 Year
  Sex: Male
  Weight: 112.04 kg

DRUGS (2)
  1. NURTEC ODT [Suspect]
     Active Substance: RIMEGEPANT SULFATE
     Indication: Migraine
     Dosage: PRESCRIBED AS ONE EVERY 24 HOURS TO ABORT MIGRAINES OR ONE EVERY 48 HOURS FOR PREVENTATIVE
     Route: 048
     Dates: start: 20240715
  2. AJOVY [Concomitant]
     Active Substance: FREMANEZUMAB-VFRM
     Dosage: UNK

REACTIONS (4)
  - Product communication issue [Unknown]
  - Overdose [Unknown]
  - Dizziness [Recovering/Resolving]
  - Off label use [Unknown]

NARRATIVE: CASE EVENT DATE: 20240715
